FAERS Safety Report 20008833 (Version 2)
Quarter: 2022Q3

REPORT INFORMATION
  Report Type: Spontaneous
  Country: JP (occurrence: JP)
  Receive Date: 20211028
  Receipt Date: 20220721
  Transmission Date: 20221027
  Serious: Yes (Death, Hospitalization)
  Sender: FDA-Public Use
  Company Number: JP-BAYER-2021A238114

PATIENT
  Age: 69 Year
  Sex: Male

DRUGS (7)
  1. ADEMPAS [Suspect]
     Active Substance: RIOCIGUAT
     Indication: Pulmonary tumour thrombotic microangiopathy
     Dosage: DAILY DOSE 3 MG
     Dates: start: 20210709, end: 20210722
  2. ADEMPAS [Suspect]
     Active Substance: RIOCIGUAT
     Indication: Pulmonary tumour thrombotic microangiopathy
     Dosage: DAILY DOSE 4.5 MG
     Dates: start: 20210723, end: 20210821
  3. TOCILIZUMAB [Concomitant]
     Active Substance: TOCILIZUMAB
     Indication: Neoplasm
     Dosage: 200MG
     Dates: start: 20210709, end: 20210821
  4. IMATINIB [Concomitant]
     Active Substance: IMATINIB
     Indication: Pulmonary tumour thrombotic microangiopathy
     Dosage: DAILY DOSE 200 MG
  5. TOLVAPTAN [Concomitant]
     Active Substance: TOLVAPTAN
     Indication: Pulmonary tumour thrombotic microangiopathy
     Dosage: DAILY DOSE 3.75 MG
  6. OXYGEN [Concomitant]
     Active Substance: OXYGEN
     Indication: Pulmonary tumour thrombotic microangiopathy
     Dosage: 2L/MIN AT REST, 6L/MIN ON EXERTION
  7. OXYGEN [Concomitant]
     Active Substance: OXYGEN
     Indication: Pulmonary hypertension
     Dosage: 15L/MIN
     Dates: start: 20210821

REACTIONS (14)
  - Pulmonary hypertension [Fatal]
  - Off label use [Fatal]
  - Respiratory arrest [Fatal]
  - Cardiac arrest [Fatal]
  - Dyspnoea [Fatal]
  - Oxygen saturation decreased [Fatal]
  - Hypoxia [Fatal]
  - Restlessness [Fatal]
  - Tachycardia [Fatal]
  - Tachypnoea [Fatal]
  - Altered state of consciousness [Fatal]
  - Shock [Fatal]
  - Mouth breathing [Fatal]
  - Pupillary reflex impaired [Fatal]

NARRATIVE: CASE EVENT DATE: 20210709
